FAERS Safety Report 6825544-4 (Version None)
Quarter: 2010Q3

REPORT INFORMATION
  Report Type: 
  Country: None (occurrence: None)
  Receive Date: 20100708
  Receipt Date: 20070226
  Transmission Date: 20110219
  Serious: No
  Sender: FDA-Public Use
  Company Number: US-PFIZER INC-2006153969

PATIENT
  Sex: Male
  Weight: 151.95 kg

DRUGS (6)
  1. CHANTIX [Suspect]
     Dosage: 1MG TWICE DAILY
     Dates: start: 20061201, end: 20061210
  2. ALBUTEROL [Concomitant]
     Indication: OCCUPATIONAL EXPOSURE TO TOXIC AGENT
     Route: 055
  3. ATENOLOL [Concomitant]
  4. XANAX [Concomitant]
     Indication: ANXIETY
  5. ROXICODONE [Concomitant]
     Indication: PAIN
  6. ALBUTEROL [Concomitant]
     Indication: PRODUCTIVE COUGH

REACTIONS (5)
  - COUGH [None]
  - DYSGEUSIA [None]
  - PRODUCTIVE COUGH [None]
  - RETCHING [None]
  - VOMITING [None]
